FAERS Safety Report 6399188-5 (Version None)
Quarter: 2009Q4

REPORT INFORMATION
  Report Type: 
  Country: None (occurrence: None)
  Receive Date: 20091008
  Receipt Date: 20090919
  Transmission Date: 20100525
  Serious: Yes (Death, Disabling)
  Sender: FDA-Public Use
  Company Number: AUR-APL-2009-00693

PATIENT
  Age: 50 Year
  Sex: Female

DRUGS (5)
  1. GABAPENTIN [Suspect]
     Indication: PAIN
     Dosage: 1800MG, DAILY, ORAL
     Route: 048
     Dates: start: 20090612, end: 20090903
  2. ALFENTANIL [Concomitant]
  3. DICLOFENAC SODIUM [Concomitant]
  4. KETAMINE HCL [Concomitant]
  5. OXYCONTIN [Concomitant]

REACTIONS (1)
  - BLISTER [None]
